FAERS Safety Report 8098077-8 (Version None)
Quarter: 2012Q1

REPORT INFORMATION
  Report Type: 
  Country: None (occurrence: None)
  Receive Date: 20120128
  Receipt Date: 20110809
  Transmission Date: 20120608
  Serious: No
  Sender: FDA-Public Use
  Company Number: US-ABBOTT-11P-163-0844782-00

PATIENT
  Sex: Female

DRUGS (2)
  1. HUMIRA [Suspect]
     Indication: RHEUMATOID ARTHRITIS
     Dates: start: 20110501
  2. HUMIRA [Suspect]
     Indication: CROHN'S DISEASE

REACTIONS (3)
  - DRUG DOSE OMISSION [None]
  - FREQUENT BOWEL MOVEMENTS [None]
  - CROHN'S DISEASE [None]
